FAERS Safety Report 8763050 (Version 2)
Quarter: 2013Q1

REPORT INFORMATION
  Report Type: Spontaneous
  Country: IL (occurrence: None)
  Receive Date: 20120814
  Receipt Date: 20130107
  Transmission Date: 20140127
  Serious: No
  Sender: FDA-Public Use
  Company Number: 0231033

PATIENT
  Sex: 0

DRUGS (2)
  1. TACHOSIL [Suspect]
     Indication: HAEMOSTASIS
  2. TACHOSIL [Suspect]
     Indication: THERAPEUTIC PROCEDURE

REACTIONS (2)
  - Application site infection [None]
  - Post procedural infection [None]
